FAERS Safety Report 8739515 (Version 4)
Quarter: 2012Q4

REPORT INFORMATION
  Report Type: Report from Study
  Country: US (occurrence: US)
  Receive Date: 20120823
  Receipt Date: 20121113
  Transmission Date: 20130627
  Serious: Yes (Other)
  Sender: FDA-Public Use
  Company Number: US-BAXTER-2012BAX013679

PATIENT
  Age: 48 Year
  Sex: Female
  Weight: 95.5 kg

DRUGS (8)
  1. GAMMAGARD LIQUID [Suspect]
     Indication: COMMON VARIABLE IMMUNODEFICIENCY
     Route: 058
     Dates: start: 20120712, end: 20120712
  2. GAMMAGARD LIQUID [Suspect]
     Route: 058
     Dates: start: 20120719, end: 20120719
  3. GAMMAGARD LIQUID [Suspect]
     Route: 058
     Dates: start: 20120727, end: 20120727
  4. GAMMAGARD LIQUID [Suspect]
     Route: 058
     Dates: start: 20120803, end: 20120803
  5. GAMMAGARD LIQUID [Suspect]
     Route: 058
     Dates: start: 20120819, end: 20120819
  6. XYZAL [Concomitant]
     Indication: ALLERGY
     Route: 048
  7. VERAMYST [Concomitant]
     Indication: ALLERGY
     Route: 045
  8. BECLOMETHASONE DIPROPIONATE [Concomitant]
     Indication: ALLERGY
     Route: 045

REACTIONS (15)
  - House dust allergy [Recovered/Resolved]
  - Deep vein thrombosis [Unknown]
  - Urinary tract disorder [Unknown]
  - Dysphagia [Recovered/Resolved]
  - Oropharyngeal pain [Recovered/Resolved]
  - Systemic lupus erythematosus [Recovered/Resolved]
  - Feeling abnormal [Recovered/Resolved]
  - Throat irritation [Recovered/Resolved]
  - Anxiety [Recovered/Resolved]
  - Fatigue [Recovered/Resolved]
  - Systemic lupus erythematosus [Not Recovered/Not Resolved]
  - Muscle spasms [Not Recovered/Not Resolved]
  - Dyspnoea [Recovered/Resolved]
  - Blood pressure diastolic increased [Unknown]
  - Heart rate increased [Unknown]
